FAERS Safety Report 16065623 (Version 11)
Quarter: 2025Q2

REPORT INFORMATION
  Report Type: Report from Study
  Country: BR (occurrence: BR)
  Receive Date: 20190313
  Receipt Date: 20250402
  Transmission Date: 20250717
  Serious: Yes (Other)
  Sender: GLAXOSMITHKLINE
  Company Number: BR-GLAXOSMITHKLINE-BR2018GSK006043

PATIENT

DRUGS (2)
  1. BELIMUMAB [Suspect]
     Active Substance: BELIMUMAB
     Indication: Systemic lupus erythematosus
     Dosage: 920 MG, Q4W, (2X400 MG + 1X120 MG)
     Route: 042
     Dates: start: 20170925
  2. BELIMUMAB [Suspect]
     Active Substance: BELIMUMAB
     Dosage: 920 MG, Q4W, (2X400 MG + 1X120 MG)
     Route: 058

REACTIONS (4)
  - Keratitis [Recovered/Resolved]
  - COVID-19 [Recovered/Resolved]
  - Incorrect route of product administration [Unknown]
  - Inappropriate schedule of product administration [Unknown]

NARRATIVE: CASE EVENT DATE: 20210501
